FAERS Safety Report 10085130 (Version 1)
Quarter: 2014Q2

REPORT INFORMATION
  Report Type: Spontaneous
  Country: GB (occurrence: None)
  Receive Date: 20140409
  Receipt Date: 20140409
  Transmission Date: 20141212
  Serious: Yes (Other)
  Sender: FDA-Public Use
  Company Number: E2B_00001718

PATIENT
  Age: 54 Year
  Sex: Male
  Weight: 95 kg

DRUGS (2)
  1. ESCITALOPRAM (UNKNOWN) [Suspect]
     Indication: BIPOLAR II DISORDER
     Dosage: 10-20MG DAILY
  2. GLICLAZIDE (UNKNOWN) [Suspect]
     Indication: DIABETES MELLITUS
     Route: 048

REACTIONS (3)
  - Inhibitory drug interaction [None]
  - Depressed mood [None]
  - Suicidal ideation [None]
